FAERS Safety Report 25178156 (Version 1)
Quarter: 2025Q2

REPORT INFORMATION
  Report Type: Other
  Country: FR (occurrence: FR)
  Receive Date: 20250409
  Receipt Date: 20250409
  Transmission Date: 20250717
  Serious: Yes (Other)
  Sender: TOLMAR
  Company Number: FR-002147023-NVSC2025FR004503

PATIENT
  Age: 84 Year
  Sex: Male
  Weight: 80 kg

DRUGS (11)
  1. LEUPROLIDE ACETATE [Suspect]
     Active Substance: LEUPROLIDE ACETATE
     Indication: Prostate cancer
     Dates: start: 20241015
  2. ELIGARD [Suspect]
     Active Substance: LEUPROLIDE ACETATE
     Indication: Prostate cancer
  3. LEUPROLIDE ACETATE [Suspect]
     Active Substance: LEUPROLIDE ACETATE
     Indication: Prostate cancer
     Dosage: 30 MG EVERY 3 MONTH, SLOW RELEASE FORMULATION
  4. PLUVICTO [Suspect]
     Active Substance: LUTETIUM LU-177 VIPIVOTIDE TETRAXETAN
     Indication: Prostate cancer metastatic
     Route: 042
     Dates: start: 20241219, end: 20241219
  5. PLUVICTO [Suspect]
     Active Substance: LUTETIUM LU-177 VIPIVOTIDE TETRAXETAN
     Route: 042
     Dates: start: 20250130, end: 20250130
  6. ERLEADA [Suspect]
     Active Substance: APALUTAMIDE
     Indication: Prostate cancer
     Dosage: 60 MILLIGRAM, BID
  7. ERLEADA [Suspect]
     Active Substance: APALUTAMIDE
     Dosage: 60 MILLIGRAM, BID
     Dates: start: 20241219
  8. AMLODIPINE AND VALSARTAN [Concomitant]
     Active Substance: AMLODIPINE\VALSARTAN
     Indication: Hypertension
     Dosage: 5/160 MG, QD
  9. AMLODIPINE AND VALSARTAN [Concomitant]
     Active Substance: AMLODIPINE\VALSARTAN
     Dosage: 5/160 MG, QD
     Dates: start: 20241219
  10. XGEVA [Concomitant]
     Active Substance: DENOSUMAB
     Indication: Prostate cancer
     Dosage: 120 MILLIGRAM, MONTHLY
  11. XGEVA [Concomitant]
     Active Substance: DENOSUMAB
     Dates: start: 20241206

REACTIONS (3)
  - Hypothyroidism [Unknown]
  - Insomnia [Recovering/Resolving]
  - Terminal insomnia [Recovering/Resolving]

NARRATIVE: CASE EVENT DATE: 20241220
